FAERS Safety Report 7275156-6 (Version None)
Quarter: 2011Q1

REPORT INFORMATION
  Report Type: 
  Country: None (occurrence: None)
  Receive Date: 20110204
  Receipt Date: 20110125
  Transmission Date: 20110831
  Serious: Yes (Hospitalization, Other)
  Sender: FDA-Public Use
  Company Number: PHHY2010DE66139

PATIENT
  Sex: Male

DRUGS (13)
  1. TRIMIPRAMINE [Concomitant]
  2. RASILEZ [Suspect]
     Dosage: 0.25 DF, QD
     Dates: end: 20101001
  3. RASILEZ [Suspect]
     Indication: HYPERTENSION
     Dosage: 1 DF, QD
     Dates: start: 20080401
  4. TRIAMTERENE AND HYDROCHLOROTHIAZIDE [Concomitant]
     Dosage: UNK
  5. RASILEZ [Suspect]
     Dosage: 0.25 DF, QD
     Dates: start: 20090901
  6. RASILEZ [Suspect]
     Dosage: 1 DF, QD
  7. RASILEZ [Suspect]
     Dosage: 0.5 DF, QD
  8. INEGY [Concomitant]
  9. DIURETICS [Concomitant]
  10. TORSEMIDE [Concomitant]
  11. INSPRA [Concomitant]
     Dosage: 50 MG
  12. RASILEZ [Suspect]
     Dosage: 0.5 DF, QD
  13. GODAMED [Concomitant]

REACTIONS (13)
  - HEART RATE DECREASED [None]
  - DIZZINESS [None]
  - TREMOR [None]
  - OEDEMA PERIPHERAL [None]
  - FACE INJURY [None]
  - SWELLING FACE [None]
  - AGITATION [None]
  - SOMNOLENCE [None]
  - MALAISE [None]
  - CIRCULATORY COLLAPSE [None]
  - LACERATION [None]
  - CONTUSION [None]
  - HYPOTENSION [None]
